FAERS Safety Report 10063260 (Version 2)
Quarter: 2014Q2

REPORT INFORMATION
  Report Type: Report from Study
  Country: DE (occurrence: DE)
  Receive Date: 20140407
  Receipt Date: 20140507
  Transmission Date: 20141212
  Serious: Yes (Death)
  Sender: FDA-Public Use
  Company Number: DE-SA-2014SA039855

PATIENT
  Age: 61 Year
  Sex: Male
  Weight: 72 kg

DRUGS (6)
  1. LANTUS [Suspect]
     Indication: DIABETES MELLITUS
     Route: 058
     Dates: end: 20140309
  2. BISOPROLOL [Concomitant]
     Dosage: STRENGTH: 5 MG
     Route: 048
     Dates: end: 2014
  3. RAMIPRIL [Concomitant]
     Dosage: STRENGTH: 5 MG
     Route: 048
     Dates: end: 20140309
  4. ASS [Concomitant]
     Dosage: STRENGTH: 100 MG
     Route: 048
     Dates: end: 20140309
  5. OMEPRAZOLE [Concomitant]
     Dosage: STRENGTH: 20  MG
     Route: 048
     Dates: end: 20140309
  6. SIMVASTATIN [Concomitant]
     Dosage: STRENGTH: 40 MG
     Route: 048
     Dates: end: 20140309

REACTIONS (1)
  - Myocardial infarction [Fatal]
